FAERS Safety Report 6930926-6 (Version None)
Quarter: 2010Q3

REPORT INFORMATION
  Report Type: 
  Country: None (occurrence: None)
  Receive Date: 20100817
  Receipt Date: 20100817
  Transmission Date: 20110219
  Serious: Yes (Hospitalization)
  Sender: FDA-Public Use
  Company Number: None

PATIENT
  Sex: Female
  Weight: 52.3 kg

DRUGS (1)
  1. DILTIAZEM [Suspect]
     Indication: HYPERTENSION
     Dosage: 1 TAB BEDTIME, APPROX 1.5 YEARS

REACTIONS (4)
  - ABASIA [None]
  - FEELING ABNORMAL [None]
  - JOINT SWELLING [None]
  - OEDEMA PERIPHERAL [None]
